FAERS Safety Report 8622511-5 (Version None)
Quarter: 2012Q3

REPORT INFORMATION
  Report Type: 
  Country: None (occurrence: None)
  Receive Date: 20120827
  Receipt Date: 20120824
  Transmission Date: 20120928
  Serious: No
  Sender: FDA-Public Use
  Company Number: US-PFIZER INC-2012208821

PATIENT
  Age: 52 Year
  Sex: Female
  Weight: 81.633 kg

DRUGS (3)
  1. EFFEXOR XR [Suspect]
     Indication: DEPRESSION
  2. SYNTHROID [Concomitant]
     Indication: HYPOTHYROIDISM
     Dosage: 0.15 MG, DAILY
  3. EFFEXOR XR [Suspect]
     Indication: ANXIETY
     Dosage: 150 MG DAILY
     Dates: end: 20120801

REACTIONS (5)
  - PALPITATIONS [None]
  - HYPERHIDROSIS [None]
  - DIZZINESS [None]
  - WITHDRAWAL SYNDROME [None]
  - VOMITING [None]
